FAERS Safety Report 8208703-8 (Version None)
Quarter: 2012Q1

REPORT INFORMATION
  Report Type: 
  Country: None (occurrence: None)
  Receive Date: 20120314
  Receipt Date: 20120308
  Transmission Date: 20120608
  Serious: Yes (Other)
  Sender: FDA-Public Use
  Company Number: US-PFIZER INC-2012063518

PATIENT
  Sex: Female

DRUGS (3)
  1. ATIVAN [Concomitant]
     Dosage: UNK
  2. PRISTIQ [Suspect]
     Dosage: 50 MG, UNK
  3. TRAZODONE [Concomitant]
     Dosage: UNK

REACTIONS (1)
  - DELIRIUM [None]
